FAERS Safety Report 9852167 (Version 2)
Quarter: 2014Q1

REPORT INFORMATION
  Report Type: Spontaneous
  Country: US (occurrence: US)
  Receive Date: 20140129
  Receipt Date: 20140129
  Transmission Date: 20141002
  Serious: Yes (Hospitalization)
  Sender: FDA-Public Use
  Company Number: US-BRACCO-008981

PATIENT
  Age: 77 Year
  Sex: Female

DRUGS (5)
  1. MULTIHANCE [Suspect]
     Indication: RENAL FAILURE CHRONIC
     Route: 042
     Dates: start: 20121219, end: 20121219
  2. MULTIHANCE [Suspect]
     Indication: RENAL DISORDER
     Route: 042
     Dates: start: 20121219, end: 20121219
  3. MULTIHANCE [Suspect]
     Indication: NUCLEAR MAGNETIC RESONANCE IMAGING ABDOMINAL
     Route: 042
     Dates: start: 20121219, end: 20121219
  4. XANAX [Concomitant]
  5. ALBUTEROL [Concomitant]

REACTIONS (1)
  - Anaphylactic shock [Unknown]
